FAERS Safety Report 8806582 (Version 3)
Quarter: 2014Q1

REPORT INFORMATION
  Report Type: Spontaneous
  Country: US (occurrence: US)
  Receive Date: 20120925
  Receipt Date: 20140320
  Transmission Date: 20141002
  Serious: Yes (Hospitalization, Other)
  Sender: FDA-Public Use
  Company Number: US-BAYER-2012-097138

PATIENT
  Age: 30 Year
  Sex: Female
  Weight: 47.62 kg

DRUGS (4)
  1. YASMIN [Suspect]
     Indication: PREMENSTRUAL SYNDROME
     Dosage: UNK
     Dates: start: 200812, end: 201001
  2. YASMIN [Suspect]
     Indication: PREMENSTRUAL DYSPHORIC DISORDER
  3. ULTRAM [Concomitant]
     Dosage: 50 MG, UNK
     Route: 048
  4. FLEXERIL [Concomitant]
     Dosage: 10 MG, UNK
     Route: 048

REACTIONS (9)
  - Cholecystectomy [None]
  - Cholecystitis acute [None]
  - Pain [None]
  - General physical health deterioration [None]
  - Emotional distress [None]
  - Injury [None]
  - Anhedonia [None]
  - Anxiety [None]
  - Pain [None]
